FAERS Safety Report 24986868 (Version 1)
Quarter: 2025Q1

REPORT INFORMATION
  Report Type: Spontaneous
  Country: US (occurrence: US)
  Receive Date: 20250219
  Receipt Date: 20250219
  Transmission Date: 20250408
  Serious: Yes (Other)
  Sender: ALKERMES
  Company Number: US-ALKERMES INC.-ALK-2025-000381

PATIENT
  Age: 51 Year
  Sex: Male
  Weight: 74.83 kg

DRUGS (7)
  1. VIVITROL [Suspect]
     Active Substance: NALTREXONE
     Indication: Alcoholism
     Route: 030
     Dates: start: 20250204
  2. VIVITROL [Suspect]
     Active Substance: NALTREXONE
     Route: 030
  3. CANNABIS SATIVA SUBSP. INDICA TOP [Concomitant]
     Active Substance: CANNABIS SATIVA SUBSP. INDICA TOP
     Indication: Increased appetite
     Route: 065
  4. NAPROXEN [Concomitant]
     Active Substance: NAPROXEN
     Indication: Pain
     Route: 065
  5. LORAZEPAM [Concomitant]
     Active Substance: LORAZEPAM
     Indication: Anxiety
     Route: 065
  6. LORAZEPAM [Concomitant]
     Active Substance: LORAZEPAM
     Indication: Insomnia
  7. UNSPECIFIED INGREDIENT [Concomitant]
     Active Substance: UNSPECIFIED INGREDIENT
     Indication: Nausea
     Route: 065

REACTIONS (24)
  - Oesophagitis [Unknown]
  - Blood iron increased [Unknown]
  - Peripheral swelling [Unknown]
  - Dyspepsia [Unknown]
  - Heart rate irregular [Unknown]
  - Ageusia [Unknown]
  - Feeding disorder [Unknown]
  - Substance use [Unknown]
  - Drug ineffective [Unknown]
  - Dyspnoea [Unknown]
  - Chest pain [Unknown]
  - Panic attack [Unknown]
  - Anxiety [Unknown]
  - Hot flush [Unknown]
  - Hyperhidrosis [Unknown]
  - Insomnia [Unknown]
  - Constipation [Unknown]
  - Arthralgia [Unknown]
  - Alcohol use [Unknown]
  - Injection site pain [Unknown]
  - Injection site erythema [Unknown]
  - Injection site induration [Unknown]
  - Injection site discolouration [Unknown]
  - Injection site mass [Not Recovered/Not Resolved]

NARRATIVE: CASE EVENT DATE: 20250201
